FAERS Safety Report 7700775-X (Version None)
Quarter: 2011Q3

REPORT INFORMATION
  Report Type: 
  Country: None (occurrence: None)
  Receive Date: 20110822
  Receipt Date: 20110817
  Transmission Date: 20111222
  Serious: Yes (Hospitalization)
  Sender: FDA-Public Use
  Company Number: DK-ROCHE-763403

PATIENT
  Sex: Male

DRUGS (2)
  1. OXALIPLATIN [Suspect]
     Indication: CHEMOTHERAPY
     Route: 065
     Dates: start: 20110103, end: 20110117
  2. XELODA [Suspect]
     Indication: CHEMOTHERAPY
     Dosage: FREQUENCY: TWICE A DAY IN 14 DAYS.
     Route: 065
     Dates: start: 20110103, end: 20110117

REACTIONS (1)
  - VENA CAVA THROMBOSIS [None]
